FAERS Safety Report 24149282 (Version 1)
Quarter: 2024Q3

REPORT INFORMATION
  Report Type: Spontaneous
  Country: GB (occurrence: GB)
  Receive Date: 20240730
  Receipt Date: 20240730
  Transmission Date: 20241016
  Serious: Yes (Other)
  Sender: GLAXOSMITHKLINE
  Company Number: None

PATIENT

DRUGS (1)
  1. MOMELOTINIB [Suspect]
     Active Substance: MOMELOTINIB
     Indication: Myelofibrosis
     Dosage: 200 MG, QD
     Route: 065
     Dates: start: 20230923

REACTIONS (3)
  - Acute kidney injury [Unknown]
  - Anaemia [Unknown]
  - Renal impairment [Unknown]

NARRATIVE: CASE EVENT DATE: 20240619
